FAERS Safety Report 7560671-8 (Version None)
Quarter: 2011Q2

REPORT INFORMATION
  Report Type: 
  Country: None (occurrence: None)
  Receive Date: 20110614
  Receipt Date: 20110602
  Transmission Date: 20111010
  Serious: Yes (Death, Hospitalization, Other)
  Sender: FDA-Public Use
  Company Number: 009674

PATIENT
  Age: 89 Year
  Sex: Female

DRUGS (11)
  1. ASPIRIN [Concomitant]
  2. FERROUS SULFATE TAB [Concomitant]
  3. RANITIDINE [Concomitant]
  4. AUGMENTIN '125' [Concomitant]
  5. ALENDRONATE SODIUM [Concomitant]
  6. CALCICHEW-D3 (CALCIUM CARBONATE, COLECALCIFEROL) [Concomitant]
  7. SALMETEROL (SALMETEROL) [Concomitant]
  8. BETAHISTINE (BETAHISTINE) [Concomitant]
  9. SAMSCA [Suspect]
     Indication: INAPPROPRIATE ANTIDIURETIC HORMONE SECRETION
     Dosage: 15 MG, SINGLE, ORAL
     Route: 048
     Dates: start: 20100501, end: 20100501
  10. SAMSCA [Suspect]
     Indication: HYPONATRAEMIA
     Dosage: 15 MG, SINGLE, ORAL
     Route: 048
     Dates: start: 20100501, end: 20100501
  11. MIRTAZAPINE [Concomitant]

REACTIONS (2)
  - LOWER RESPIRATORY TRACT INFECTION [None]
  - PNEUMONIA [None]
